FAERS Safety Report 12699190 (Version 1)
Quarter: 2016Q3

REPORT INFORMATION
  Report Type: Spontaneous
  Country: TW (occurrence: TW)
  Receive Date: 20160830
  Receipt Date: 20160830
  Transmission Date: 20161109
  Serious: Yes (Hospitalization)
  Sender: FDA-Public Use
  Company Number: PHHY2016TW117530

PATIENT
  Age: 23 Year
  Sex: Male

DRUGS (9)
  1. CICLOSPORIN [Interacting]
     Active Substance: CYCLOSPORINE
     Dosage: 380 MG, Q12H (DAY: 8)
     Route: 048
  2. CICLOSPORIN [Interacting]
     Active Substance: CYCLOSPORINE
     Dosage: 150 MG, Q12H (DAY : 11)
     Route: 048
  3. ERYTHROMYCIN. [Interacting]
     Active Substance: ERYTHROMYCIN
     Indication: PNEUMONIA LEGIONELLA
     Dosage: 1 G, Q6H (DAY: 0, 3, 5, 8, 9, 10 AND 11)
     Route: 042
  4. AZATHIOPRINE. [Suspect]
     Active Substance: AZATHIOPRINE
     Indication: IMMUNOSUPPRESSANT DRUG THERAPY
  5. PREDNISONE. [Suspect]
     Active Substance: PREDNISONE
     Indication: RENAL TRANSPLANT
     Dosage: 30 MG, BID
     Route: 065
  6. CICLOSPORIN [Interacting]
     Active Substance: CYCLOSPORINE
     Indication: RENAL TRANSPLANT
     Dosage: 300 MG, Q12H (DAY: -6)
     Route: 048
  7. AZATHIOPRINE. [Suspect]
     Active Substance: AZATHIOPRINE
     Indication: RENAL TRANSPLANT
     Dosage: 150 MG, QHS
     Route: 065
  8. CICLOSPORIN [Interacting]
     Active Substance: CYCLOSPORINE
     Indication: IMMUNOSUPPRESSANT DRUG THERAPY
     Dosage: 450 MG, Q12H (DAY: 0, 3 AND 5)
     Route: 048
  9. PREDNISONE. [Suspect]
     Active Substance: PREDNISONE
     Indication: IMMUNOSUPPRESSANT DRUG THERAPY

REACTIONS (5)
  - Immunosuppressant drug level increased [Unknown]
  - Pyrexia [Unknown]
  - Pneumonia legionella [Unknown]
  - Dyspnoea [Unknown]
  - Drug interaction [Unknown]
